FAERS Safety Report 6747500-7 (Version None)
Quarter: 2010Q2

REPORT INFORMATION
  Report Type: 
  Country: None (occurrence: None)
  Receive Date: 20100526
  Receipt Date: 20100514
  Transmission Date: 20101027
  Serious: Yes (Hospitalization)
  Sender: FDA-Public Use
  Company Number: 2010S1000190-002

PATIENT
  Sex: Female

DRUGS (2)
  1. PITAVASTATIN CALCIUM [Suspect]
     Indication: HYPERLIPIDAEMIA
     Dosage: 2MG
     Route: 048
     Dates: end: 20100107
  2. PROPRANOLOL HYDROCHLORIDE [Concomitant]

REACTIONS (5)
  - CHOLELITHIASIS [None]
  - DECREASED APPETITE [None]
  - DIZZINESS [None]
  - DYSARTHRIA [None]
  - RHABDOMYOLYSIS [None]
